FAERS Safety Report 4846733-4 (Version None)
Quarter: 2005Q4

REPORT INFORMATION
  Report Type: 
  Country: None (occurrence: None)
  Receive Date: 20051206
  Receipt Date: 20050830
  Transmission Date: 20060501
  Serious: Yes (Hospitalization, Other)
  Sender: FDA-Public Use
  Company Number: US-MERCK-0508USA05018

PATIENT
  Age: 68 Year
  Sex: Male
  Weight: 91 kg

DRUGS (3)
  1. VIOXX [Suspect]
     Indication: ARTHRITIS
     Route: 048
     Dates: start: 20000803, end: 20040701
  2. VIOXX [Suspect]
     Indication: BACK PAIN
     Route: 048
     Dates: start: 20000803, end: 20040701
  3. ASPIRIN [Concomitant]
     Route: 065

REACTIONS (5)
  - ARTERIAL INSUFFICIENCY [None]
  - FOOT FRACTURE [None]
  - HAEMORRHOIDS [None]
  - MYOCARDIAL INFARCTION [None]
  - SYNCOPE [None]
